FAERS Safety Report 5081852-1 (Version None)
Quarter: 2006Q3

REPORT INFORMATION
  Report Type: 
  Country: None (occurrence: None)
  Receive Date: 20060816
  Receipt Date: 20060808
  Transmission Date: 20061208
  Serious: Yes (Hospitalization)
  Sender: FDA-Public Use
  Company Number: US-JNJFOC-20060800927

PATIENT
  Sex: Male
  Weight: 86.18 kg

DRUGS (5)
  1. REMICADE [Suspect]
     Dosage: 5 INFUSIONS
     Route: 042
  2. REMICADE [Suspect]
     Indication: RHEUMATOID ARTHRITIS
     Route: 042
  3. MOBIC [Concomitant]
  4. PREDNISONE [Concomitant]
  5. ARAVA [Concomitant]
     Indication: RHEUMATOID ARTHRITIS

REACTIONS (6)
  - CHILLS [None]
  - DECREASED APPETITE [None]
  - FATIGUE [None]
  - GALLBLADDER DISORDER [None]
  - GASTROINTESTINAL FUNGAL INFECTION [None]
  - WEIGHT DECREASED [None]
